FAERS Safety Report 26168629 (Version 1)
Quarter: 2025Q4

REPORT INFORMATION
  Report Type: Spontaneous
  Country: EU (occurrence: EU)
  Receive Date: 20251217
  Receipt Date: 20251217
  Transmission Date: 20260117
  Serious: Yes (Hospitalization, Other)
  Sender: AUROBINDO
  Company Number: EU-AstraZeneca-2024A134512

PATIENT
  Age: 73 Year
  Sex: Female
  Weight: 59 kg

DRUGS (25)
  1. CARBOPLATIN [Suspect]
     Active Substance: CARBOPLATIN
     Indication: Breast cancer
     Dosage: UNK (5 AUC)
     Route: 065
     Dates: start: 20240129, end: 20240412
  2. PEMETREXED [Suspect]
     Active Substance: PEMETREXED
     Indication: Non-small cell lung cancer metastatic
     Dosage: 500 MILLIGRAM/SQ. METER, Q3W
     Route: 065
     Dates: start: 20240129, end: 20240523
  3. CISPLATIN [Suspect]
     Active Substance: CISPLATIN
     Indication: Breast cancer
     Dosage: 75 MILLIMOLE PER SQUARE METRE, Q3W
     Route: 065
  4. PEMBROLIZUMAB [Suspect]
     Active Substance: PEMBROLIZUMAB
     Indication: Breast cancer
     Dosage: 200 MILLIGRAM ONCE EVERY 3 WK
     Route: 065
  5. ACETAMINOPHEN [Concomitant]
     Active Substance: ACETAMINOPHEN
     Indication: Pancytopenia
     Dosage: 500 MG, SINGLE
     Route: 065
     Dates: start: 20240609, end: 20240609
  6. DROTAVERINE HYDROCHLORIDE [Concomitant]
     Active Substance: DROTAVERINE HYDROCHLORIDE
     Indication: Atrial fibrillation
     Dosage: 40 MILLIGRAM, ONCE A DAY
     Route: 065
     Dates: start: 20240219
  7. CO TRITACE [Concomitant]
     Indication: Atrial fibrillation
     Dosage: 5 MILLIGRAM, TWO TIMES A DAY
     Route: 065
     Dates: start: 2014
  8. PROPAFENONE HYDROCHLORIDE [Concomitant]
     Active Substance: PROPAFENONE HYDROCHLORIDE
     Indication: Hypertension
     Dosage: 300 MILLIGRAM, 3 TIMES A DAY
     Route: 065
     Dates: start: 2023
  9. BISOPROLOL [Concomitant]
     Active Substance: BISOPROLOL
     Indication: Hypertension
     Dosage: 7.5 MILLIGRAM, ONCE A DAY
     Route: 065
     Dates: start: 2014
  10. DEXAMETHASONE [Concomitant]
     Active Substance: DEXAMETHASONE
     Indication: Anticoagulant therapy
     Dosage: 16 MILLILITER, AS NECESSARY
     Route: 065
     Dates: start: 20240129
  11. ARTIFICIAL TEARS (POLYVINYL ALCOHOL) [Concomitant]
     Active Substance: POLYVINYL ALCOHOL
     Indication: Hypercholesterolaemia
     Dosage: 1 DOSAGE FORM, FOUR TIMES/DAY
     Route: 065
     Dates: start: 2020
  12. IRRADIATED PLATELET CONCENTRATE-LEUKOCYTES REDUCED [Concomitant]
     Indication: Pancytopenia
     Dosage: UNK (O 10 ONCE/SINGLE ADMINISTRATION)
     Route: 065
     Dates: start: 20240605, end: 20240605
  13. HUMAN RED BLOOD CELL [Concomitant]
     Active Substance: HUMAN RED BLOOD CELL
     Indication: Creatinine renal clearance decreased
     Dosage: UNK (O 2 ONCE/SINGLE ADMINISTRATION)
     Route: 065
     Dates: start: 20240605, end: 20240605
  14. HUMAN RED BLOOD CELL [Concomitant]
     Active Substance: HUMAN RED BLOOD CELL
     Indication: Premedication
     Dosage: UNK (O 2 ONCE/SINGLE ADMINISTRATION)
     Route: 065
     Dates: start: 20240606, end: 20240606
  15. HUMAN RED BLOOD CELL [Concomitant]
     Active Substance: HUMAN RED BLOOD CELL
     Indication: Hypothyroidism
  16. HUMAN RED BLOOD CELL [Concomitant]
     Active Substance: HUMAN RED BLOOD CELL
     Indication: Pancytopenia
  17. HUMAN RED BLOOD CELL [Concomitant]
     Active Substance: HUMAN RED BLOOD CELL
     Indication: Urinary tract pain
  18. HUMAN RED BLOOD CELL [Concomitant]
     Active Substance: HUMAN RED BLOOD CELL
     Indication: Anaemia
  19. HUMAN RED BLOOD CELL [Concomitant]
     Active Substance: HUMAN RED BLOOD CELL
     Indication: Anaemia
  20. EUTHYROX [Concomitant]
     Active Substance: LEVOTHYROXINE SODIUM
     Indication: Prophylaxis
     Dosage: 112 MICROGRAM, DAILY
     Route: 065
  21. AMLODIPINE BESYLATE [Concomitant]
     Active Substance: AMLODIPINE BESYLATE
     Indication: Hypertension
     Dosage: 5 MILLIGRAM, ONCE A DAY
     Route: 065
     Dates: start: 2014
  22. ROSUVASTATIN [Concomitant]
     Active Substance: ROSUVASTATIN
     Indication: Hypercholesterolaemia
     Dosage: 10 MILLIGRAM, ONCE A DAY
     Route: 065
     Dates: start: 2014
  23. ONDANSETRON [Concomitant]
     Active Substance: ONDANSETRON
     Indication: Prophylaxis
     Dosage: 8 MILLIGRAM
     Route: 065
  24. PRADAXA [Concomitant]
     Active Substance: DABIGATRAN ETEXILATE MESYLATE
     Indication: Embolism
     Dosage: 150 MILLIGRAM, ONCE A DAY
     Route: 065
     Dates: start: 2022
  25. TRAZODONE HYDROCHLORIDE [Concomitant]
     Active Substance: TRAZODONE HYDROCHLORIDE
     Indication: Premedication
     Dosage: 75 MILLIGRAM, ONCE A DAY
     Route: 065
     Dates: start: 20240304

REACTIONS (1)
  - Interstitial lung disease [Recovered/Resolved]

NARRATIVE: CASE EVENT DATE: 20240607
